FAERS Safety Report 11603087 (Version 1)
Quarter: 2015Q4

REPORT INFORMATION
  Report Type: Spontaneous
  Country: US (occurrence: None)
  Receive Date: 20151005
  Receipt Date: 20151005
  Transmission Date: 20160304
  Serious: Yes (Hospitalization)
  Sender: FDA-Public Use
  Company Number: None

PATIENT
  Age: 13 Year
  Sex: Male
  Weight: 40.37 kg

DRUGS (4)
  1. ANTRONEX [Concomitant]
  2. IMITREX [Suspect]
     Active Substance: SUMATRIPTAN\SUMATRIPTAN SUCCINATE
     Indication: MIGRAINE
     Dosage: INDEFINITE, STARTED SEPTEMBER?1 PILL TWICE DAILY
     Route: 048
  3. CARDIO PLUS [Concomitant]
  4. IBUPROFEN. [Concomitant]
     Active Substance: IBUPROFEN

REACTIONS (2)
  - Anger [None]
  - Abnormal behaviour [None]

NARRATIVE: CASE EVENT DATE: 20151001
